FAERS Safety Report 9968450 (Version 1)
Quarter: 2014Q1

REPORT INFORMATION
  Report Type: Spontaneous
  Country: US (occurrence: US)
  Receive Date: 20140306
  Receipt Date: 20140306
  Transmission Date: 20141002
  Serious: No
  Sender: FDA-Public Use
  Company Number: US-ABBVIE-13P-163-1140575-00

PATIENT
  Age: 55 Year
  Sex: Female
  Weight: 66.74 kg

DRUGS (8)
  1. HUMIRA [Suspect]
     Indication: RHEUMATOID ARTHRITIS
     Dates: start: 201302, end: 201304
  2. ATENOLOL [Concomitant]
     Indication: HYPERTENSION
  3. LISINOPRIL [Concomitant]
     Indication: HYPERTENSION
  4. IMDUR [Concomitant]
     Indication: HYPERTENSION
  5. TIZANIDINE [Concomitant]
     Indication: MUSCLE SPASMS
  6. AMITRIPTYLINE [Concomitant]
     Indication: DEPRESSION
  7. HYDROCODONE [Concomitant]
     Indication: PAIN
  8. LYRICA [Concomitant]
     Indication: PAIN

REACTIONS (1)
  - Injection site pain [Recovered/Resolved]
